FAERS Safety Report 23780331 (Version 5)
Quarter: 2024Q3

REPORT INFORMATION
  Report Type: Report from Study
  Country: US (occurrence: US)
  Receive Date: 20240424
  Receipt Date: 20240806
  Transmission Date: 20241017
  Serious: Yes (Other)
  Sender: ABBVIE
  Company Number: US-ABBVIE-5729470

PATIENT
  Age: 57 Year
  Sex: Male
  Weight: 102 kg

DRUGS (7)
  1. SKYRIZI [Suspect]
     Active Substance: RISANKIZUMAB-RZAA
     Indication: Psoriasis
     Dosage: WEEK 0?FORM STRENGTH: 150 MILLIGRAM
     Route: 058
     Dates: start: 20210104, end: 20210104
  2. SKYRIZI [Suspect]
     Active Substance: RISANKIZUMAB-RZAA
     Dosage: WEEK 12?FORM STRENGTH: 150 MILLIGRAM
     Route: 058
     Dates: start: 20210426
  3. SKYRIZI [Suspect]
     Active Substance: RISANKIZUMAB-RZAA
     Dosage: WEEK 4?FORM STRENGTH: 150 MILLIGRAM
     Route: 058
     Dates: start: 20210201, end: 20210201
  4. ROSUVASTATIN [Concomitant]
     Active Substance: ROSUVASTATIN\ROSUVASTATIN CALCIUM
     Indication: Hyperlipidaemia
     Dosage: FORM STRENGTH: 40 MILLIGRAM
  5. LEVOTHYROXINE [Concomitant]
     Active Substance: LEVOTHYROXINE\LEVOTHYROXINE SODIUM
     Indication: Hypothyroidism
     Dosage: FORM STRENGTH: 100 MICROGRAM
  6. LISINOPRIL [Concomitant]
     Active Substance: LISINOPRIL
     Indication: Urinary tract disorder prophylaxis
     Dosage: FORM STRENGTH: 20 MILLIGRAM
  7. POTASSIUM CITRATE [Concomitant]
     Active Substance: POTASSIUM CITRATE
     Indication: Renal lithiasis prophylaxis
     Dosage: FORM STRENGTH: 1080 MILLIGRAM

REACTIONS (5)
  - Cystocele [Recovered/Resolved]
  - Benign prostatic hyperplasia [Recovering/Resolving]
  - Off label use [Recovering/Resolving]
  - Micturition disorder [Recovered/Resolved]
  - Medical procedure [Unknown]

NARRATIVE: CASE EVENT DATE: 20240719
